FAERS Safety Report 6893511-0 (Version None)
Quarter: 2010Q3

REPORT INFORMATION
  Report Type: 
  Country: None (occurrence: None)
  Receive Date: 20100731
  Receipt Date: 20090928
  Transmission Date: 20110219
  Serious: No
  Sender: FDA-Public Use
  Company Number: US-PFIZER INC-2009260137

PATIENT
  Sex: Female

DRUGS (4)
  1. LIPITOR [Suspect]
     Dosage: UNK
     Route: 048
     Dates: start: 20090101, end: 20090101
  2. PLAVIX [Suspect]
     Indication: CEREBROVASCULAR ACCIDENT
     Dosage: 75 MG, 1X/DAY
     Route: 048
     Dates: start: 20080901
  3. PRAVASTATIN [Suspect]
     Dosage: UNK
     Route: 065
     Dates: start: 20090101, end: 20090101
  4. ZOCOR [Suspect]
     Dosage: UNK
     Route: 065
     Dates: start: 20080901, end: 20090101

REACTIONS (2)
  - CONTUSION [None]
  - FATIGUE [None]
